FAERS Safety Report 20908467 (Version 10)
Quarter: 2024Q1

REPORT INFORMATION
  Report Type: Other
  Country: DE (occurrence: None)
  Receive Date: 20220603
  Receipt Date: 20240228
  Transmission Date: 20240410
  Serious: Yes (Other)
  Sender: FDA-Public Use
  Company Number: DE-ROCHE-3110660

PATIENT
  Age: 27 Year
  Sex: Female
  Weight: 78 kg

DRUGS (6)
  1. OCREVUS [Suspect]
     Active Substance: OCRELIZUMAB
     Indication: Relapsing-remitting multiple sclerosis
     Route: 042
     Dates: start: 20181203
  2. OCREVUS [Suspect]
     Active Substance: OCRELIZUMAB
     Dosage: 2X 300 MG
     Route: 042
     Dates: start: 20231212
  3. LAMOTRIGINE [Concomitant]
     Active Substance: LAMOTRIGINE
  4. PANTOPRAZOLE [Concomitant]
     Active Substance: PANTOPRAZOLE
  5. CETIRIZINE [Concomitant]
     Active Substance: CETIRIZINE HYDROCHLORIDE
     Route: 048
  6. PREDNISOLONE [Concomitant]
     Active Substance: PREDNISOLONE
     Route: 042

REACTIONS (15)
  - COVID-19 [Recovered/Resolved]
  - Pyrexia [Recovered/Resolved]
  - Cough [Not Recovered/Not Resolved]
  - SARS-CoV-2 antibody test negative [Unknown]
  - C-reactive protein increased [Recovered/Resolved]
  - Infection susceptibility increased [Not Recovered/Not Resolved]
  - Viral infection [Unknown]
  - Bacterial infection [Unknown]
  - Nasopharyngitis [Not Recovered/Not Resolved]
  - Blood immunoglobulin G decreased [Recovered/Resolved]
  - Blood immunoglobulin M decreased [Not Recovered/Not Resolved]
  - Cystitis noninfective [Unknown]
  - Myelodysplastic syndrome [Not Recovered/Not Resolved]
  - Abscess limb [Not Recovered/Not Resolved]
  - Inappropriate schedule of product administration [Unknown]

NARRATIVE: CASE EVENT DATE: 20181203
